FAERS Safety Report 8899615 (Version 2)
Quarter: 2012Q4

REPORT INFORMATION
  Report Type: 
  Country: IT (occurrence: IT)
  Receive Date: 20121109
  Receipt Date: 20121206
  Transmission Date: 20130627
  Serious: Yes (Hospitalization)
  Sender: FDA-Public Use
  Company Number: IT-COVIDIEN/TYCO HEALTHCARE/MALLINCKRODT-T201203858

PATIENT
  Age: 53 Year
  Sex: Male

DRUGS (4)
  1. OPTIRAY [Suspect]
     Indication: COMPUTERISED TOMOGRAM
     Dosage: 125 ml, single
     Route: 042
     Dates: start: 20121102, end: 20121102
  2. TRIMETON                           /00072502/ [Concomitant]
     Indication: PREMEDICATION
     Dosage: Vial
  3. FLEBOCORTID [Concomitant]
     Indication: PREMEDICATION
     Dosage: 1 g, UNK
  4. ANSIOLIN [Concomitant]
     Indication: PREMEDICATION
     Dosage: Drops

REACTIONS (2)
  - Anaphylactic shock [Recovered/Resolved]
  - Hypotension [Recovered/Resolved]
